FAERS Safety Report 25867548 (Version 2)
Quarter: 2025Q4

REPORT INFORMATION
  Report Type: Spontaneous
  Country: US (occurrence: US)
  Receive Date: 20251001
  Receipt Date: 20251007
  Transmission Date: 20260117
  Serious: No
  Sender: AMGEN
  Company Number: US-AMGEN-USASP2025193291

PATIENT
  Age: 82 Year
  Sex: Female

DRUGS (2)
  1. XGEVA [Suspect]
     Active Substance: DENOSUMAB
     Indication: Bone cancer
     Dosage: 120 MILLIGRAM (120 MG/1.7 ML (70 MG/ML)
     Route: 065
  2. XGEVA [Suspect]
     Active Substance: DENOSUMAB
     Indication: Lung neoplasm malignant

REACTIONS (2)
  - Refusal of treatment by patient [Unknown]
  - Product communication issue [Unknown]

NARRATIVE: CASE EVENT DATE: 20210919
